FAERS Safety Report 6614538-X (Version None)
Quarter: 2010Q1

REPORT INFORMATION
  Report Type: 
  Country: None (occurrence: None)
  Receive Date: 20100304
  Receipt Date: 20100209
  Transmission Date: 20100710
  Serious: Yes (Hospitalization)
  Sender: FDA-Public Use
  Company Number: IT-ABBOTT-10P-083-0625256-00

PATIENT
  Sex: Male

DRUGS (3)
  1. VECLAM [Suspect]
     Indication: PHARYNGOTONSILLITIS
     Route: 048
     Dates: start: 20091124, end: 20091204
  2. ZOPRANOL [Concomitant]
     Indication: ESSENTIAL HYPERTENSION
     Route: 048
     Dates: start: 20091121
  3. EUTIROX [Concomitant]
     Indication: HYPOTHYROIDISM
     Route: 048

REACTIONS (7)
  - DYSPHAGIA [None]
  - ERYTHEMA [None]
  - FACE OEDEMA [None]
  - PALATAL OEDEMA [None]
  - PRURIGO [None]
  - THROAT TIGHTNESS [None]
  - TONGUE OEDEMA [None]
